FAERS Safety Report 18068898 (Version 1)
Quarter: 2020Q3

REPORT INFORMATION
  Report Type: Spontaneous
  Country: FR (occurrence: FR)
  Receive Date: 20200725
  Receipt Date: 20200725
  Transmission Date: 20201103
  Serious: Yes (Hospitalization)
  Sender: FDA-Public Use
  Company Number: FR-ACCORD-192750

PATIENT
  Age: 77 Year
  Sex: Female
  Weight: 56.2 kg

DRUGS (16)
  1. VERSATIS [Concomitant]
     Active Substance: LIDOCAINE
  2. DIOSMECTITE [Concomitant]
     Active Substance: MONTMORILLONITE
  3. SERTRALINE [Concomitant]
     Active Substance: SERTRALINE HYDROCHLORIDE
  4. NEUPRO [Concomitant]
     Active Substance: ROTIGOTINE
  5. PARACETAMOL [Concomitant]
     Active Substance: ACETAMINOPHEN
  6. REVLIMID [Suspect]
     Active Substance: LENALIDOMIDE
     Indication: LYMPHOMA
     Dosage: STRENGTH: 25 MG
     Route: 042
     Dates: start: 20200515
  7. AMIODARONE [Concomitant]
     Active Substance: AMIODARONE
  8. CANDESARTAN. [Concomitant]
     Active Substance: CANDESARTAN
  9. OXYCODONE/OXYCODONE HYDROCHLORIDE/OXYCODONE PECTINATE/OXYCODONE TEREPHTHALATE [Concomitant]
     Active Substance: OXYCODONE
  10. OBINUTUZUMAB. [Suspect]
     Active Substance: OBINUTUZUMAB
     Indication: LYMPHOMA
     Route: 042
     Dates: start: 20200515, end: 20200515
  11. LEVOTHYROX [Concomitant]
     Active Substance: LEVOTHYROXINE
  12. METFORMIN [Suspect]
     Active Substance: METFORMIN HYDROCHLORIDE
     Indication: TYPE 2 DIABETES MELLITUS
     Route: 048
     Dates: end: 20200529
  13. LERCANIDIPINE [Concomitant]
     Active Substance: LERCANIDIPINE
  14. ZOPICLONE [Concomitant]
     Active Substance: ZOPICLONE
  15. FUROSEMIDE. [Suspect]
     Active Substance: FUROSEMIDE
     Indication: HYPERTENSION
     Route: 048
     Dates: end: 20200529
  16. PANTOPRAZOLE [Suspect]
     Active Substance: PANTOPRAZOLE
     Indication: PRODUCT USED FOR UNKNOWN INDICATION
     Route: 048
     Dates: end: 20200603

REACTIONS (2)
  - Urinary tract infection [Recovered/Resolved]
  - Pancytopenia [Recovered/Resolved]

NARRATIVE: CASE EVENT DATE: 202005
